FAERS Safety Report 5747909-4 (Version None)
Quarter: 2008Q2

REPORT INFORMATION
  Report Type: 
  Country: None (occurrence: None)
  Receive Date: 20080523
  Receipt Date: 20080509
  Transmission Date: 20081010
  Serious: Yes (Hospitalization, Other)
  Sender: FDA-Public Use
  Company Number: US-BAYER-US-2007-038075

PATIENT
  Age: 66 Year
  Sex: Female
  Weight: 61 kg

DRUGS (9)
  1. BETASERON [Suspect]
     Indication: RELAPSING-REMITTING MULTIPLE SCLEROSIS
     Dosage: TOTAL DAILY DOSE: 8 MIU
     Route: 058
     Dates: start: 19940314
  2. BETASERON [Suspect]
     Dosage: TOTAL DAILY DOSE: 8 MIU
     Route: 058
     Dates: start: 19940314
  3. DILANTIN /CAN/ [Concomitant]
     Indication: CONVULSION
  4. KEFLEX [Concomitant]
  5. NITROFUR MAC [Concomitant]
  6. ASPIRIN [Concomitant]
  7. ASPIRIN [Concomitant]
     Indication: ANTICOAGULANT THERAPY
  8. ASPIRIN [Concomitant]
  9. HEPARIN [Concomitant]
     Dates: end: 20061211

REACTIONS (11)
  - CONVULSION [None]
  - DEMENTIA [None]
  - ESCHERICHIA INFECTION [None]
  - GAIT DISTURBANCE [None]
  - MENTAL STATUS CHANGES [None]
  - MULTIPLE SCLEROSIS [None]
  - SINUSITIS [None]
  - SPEECH DISORDER [None]
  - TROPONIN INCREASED [None]
  - URINARY TRACT INFECTION [None]
  - UROSEPSIS [None]
